FAERS Safety Report 12467191 (Version 1)
Quarter: 2016Q2

REPORT INFORMATION
  Report Type: Spontaneous
  Country: JP (occurrence: JP)
  Receive Date: 20160615
  Receipt Date: 20160615
  Transmission Date: 20160815
  Serious: Yes (Other)
  Sender: FDA-Public Use
  Company Number: JP-ROCHE-1775716

PATIENT
  Age: 38 Year
  Sex: Male
  Weight: 80 kg

DRUGS (8)
  1. SEISHOKU [Concomitant]
     Active Substance: SODIUM CHLORIDE
     Dosage: THE FRACTIONATION DOSE FREQUENCY IS UNCERTAIN. ?DOSE INTERVAL UNCERTAINTY
     Route: 041
     Dates: start: 20160530, end: 20160601
  2. ROCEPHIN [Suspect]
     Active Substance: CEFTRIAXONE SODIUM
     Indication: PERITONSILLITIS
     Route: 041
     Dates: start: 20100306, end: 20100306
  3. SOLU-CORTEF [Concomitant]
     Active Substance: HYDROCORTISONE SODIUM SUCCINATE
     Indication: LARYNGEAL OEDEMA
     Route: 041
     Dates: start: 20100306, end: 20100306
  4. SOLU-CORTEF [Concomitant]
     Active Substance: HYDROCORTISONE SODIUM SUCCINATE
     Dosage: THE FRACTIONATION DOSE FREQUENCY IS UNCERTAIN. ?DOSE INTERVAL UNCERTAINTY
     Route: 041
     Dates: start: 20160530, end: 20160601
  5. LIPITOR [Concomitant]
     Active Substance: ATORVASTATIN CALCIUM
     Indication: HYPERLIPIDAEMIA
     Route: 065
  6. ZYLORIC [Concomitant]
     Active Substance: ALLOPURINOL
     Indication: HYPERURICAEMIA
     Route: 065
  7. ROCEPHIN [Suspect]
     Active Substance: CEFTRIAXONE SODIUM
     Route: 041
     Dates: start: 20160530, end: 20160530
  8. SEISHOKU [Concomitant]
     Active Substance: SODIUM CHLORIDE
     Indication: LARYNGEAL OEDEMA
     Route: 041
     Dates: start: 20100306, end: 20100306

REACTIONS (4)
  - Face oedema [Unknown]
  - Drug eruption [Recovered/Resolved]
  - Anaphylactic reaction [Unknown]
  - Urticaria [Recovered/Resolved]

NARRATIVE: CASE EVENT DATE: 20160530
